FAERS Safety Report 12664051 (Version 1)
Quarter: 2016Q3

REPORT INFORMATION
  Report Type: Spontaneous
  Country: US (occurrence: US)
  Receive Date: 20160818
  Receipt Date: 20160818
  Transmission Date: 20161109
  Serious: No
  Sender: FDA-Public Use
  Company Number: US-GLAXOSMITHKLINE-CHPA2016US002286

PATIENT
  Age: 35 Year
  Sex: Female

DRUGS (5)
  1. TRANSDERM SCOP [Suspect]
     Active Substance: SCOPOLAMINE
     Dosage: 1 DF, Q3D
     Route: 062
     Dates: start: 2013
  2. TRANSDERM SCOP [Suspect]
     Active Substance: SCOPOLAMINE
     Indication: VOMITING
  3. TRANSDERM SCOP [Suspect]
     Active Substance: SCOPOLAMINE
     Indication: BALANCE DISORDER
  4. TRANSDERM SCOP [Suspect]
     Active Substance: SCOPOLAMINE
     Indication: MOTION SICKNESS
  5. TRANSDERM SCOP [Suspect]
     Active Substance: SCOPOLAMINE
     Indication: HEADACHE

REACTIONS (2)
  - Off label use [Unknown]
  - Therapeutic response unexpected [Unknown]

NARRATIVE: CASE EVENT DATE: 2013
